FAERS Safety Report 6903969-6 (Version None)
Quarter: 2010Q3

REPORT INFORMATION
  Report Type: 
  Country: None (occurrence: None)
  Receive Date: 20100804
  Receipt Date: 20090212
  Transmission Date: 20110219
  Serious: No
  Sender: FDA-Public Use
  Company Number: US-PFIZER INC-2009171497

PATIENT
  Sex: Female
  Weight: 52.6 kg

DRUGS (8)
  1. LYRICA [Suspect]
     Indication: FIBROMYALGIA
     Dosage: 50MG IN THE MORNING, 50MG AT NOON, 200MG AT BEDTIME
     Route: 048
     Dates: start: 20070101
  2. IBANDRONATE SODIUM [Concomitant]
     Dosage: UNK
  3. OXYCODONE [Concomitant]
     Dosage: UNK
  4. DICYCLOMINE [Concomitant]
     Dosage: UNK
  5. VITAMIN TAB [Concomitant]
     Dosage: UNK
  6. SIMVASTATIN [Concomitant]
     Dosage: UNK
  7. FENTANYL [Concomitant]
     Dosage: UNK
  8. RANITIDINE [Concomitant]
     Dosage: UNK

REACTIONS (1)
  - URTICARIA [None]
